FAERS Safety Report 23425164 (Version 7)
Quarter: 2024Q2

REPORT INFORMATION
  Report Type: Spontaneous
  Country: JP (occurrence: JP)
  Receive Date: 20240121
  Receipt Date: 20240627
  Transmission Date: 20240716
  Serious: Yes (Hospitalization)
  Sender: FDA-Public Use
  Company Number: JP-ABBVIE-5590523

PATIENT
  Age: 26 Year
  Sex: Female
  Weight: 35 kg

DRUGS (6)
  1. HUMIRA [Suspect]
     Active Substance: ADALIMUMAB
     Indication: Colitis ulcerative
     Dosage: FORM STRENGTH: 40 MILLIGRAMS
     Route: 058
     Dates: start: 20240108, end: 20240108
  2. HUMIRA [Suspect]
     Active Substance: ADALIMUMAB
     Dosage: HIGH DOSE?FORM STRENGTH: 40 MILLIGRAMS
     Route: 058
     Dates: start: 20231211, end: 20231225
  3. SULFAMETHOXAZOLE AND TRIMETHOPRIM [Concomitant]
     Active Substance: SULFAMETHOXAZOLE\TRIMETHOPRIM
     Indication: Colitis ulcerative
     Dosage: 1 TABLET
     Route: 048
     Dates: start: 20230503
  4. RINVOQ [Suspect]
     Active Substance: UPADACITINIB
     Indication: Colitis ulcerative
     Dosage: FORM STRENGTH:15 MILLIGRAM
     Route: 048
     Dates: start: 20240110
  5. CLOSTRIDIUM BUTYRICUM SPORES STRAIN M-55 [Concomitant]
     Active Substance: CLOSTRIDIUM BUTYRICUM SPORES STRAIN M-55
     Indication: Colitis ulcerative
     Dosage: TIME INTERVAL: 0.33333333 DAYS: 3 TABLET
     Route: 048
     Dates: start: 20230426
  6. TACROLIMUS [Concomitant]
     Active Substance: TACROLIMUS
     Indication: Colitis ulcerative
     Dosage: 7 MILLIGRAM
     Route: 048
     Dates: start: 20230510, end: 20240108

REACTIONS (5)
  - Haematochezia [Unknown]
  - Therapeutic product effect incomplete [Unknown]
  - Pyrexia [Not Recovered/Not Resolved]
  - Drug ineffective [Unknown]
  - Colitis ulcerative [Not Recovered/Not Resolved]

NARRATIVE: CASE EVENT DATE: 20240101
